FAERS Safety Report 8216275-7 (Version None)
Quarter: 2012Q1

REPORT INFORMATION
  Report Type: 
  Country: None (occurrence: None)
  Receive Date: 20120316
  Receipt Date: 20120308
  Transmission Date: 20120608
  Serious: Yes (Hospitalization)
  Sender: FDA-Public Use
  Company Number: PHHY2012DE020492

PATIENT
  Sex: Female

DRUGS (8)
  1. HYDROCHLOROTHIAZIDE [Interacting]
     Dosage: 12.5 MG, QD
     Route: 048
     Dates: end: 20110920
  2. AURORIX [Concomitant]
     Dosage: 300 MG, QD
     Route: 048
     Dates: start: 20110923
  3. CITALOPRAM HYDROBROMIDE [Interacting]
     Indication: DEPRESSION
     Dosage: 20 MG, QD
     Route: 048
     Dates: end: 20110921
  4. LEVOTHYROXINE SODIUM [Concomitant]
     Dosage: 88 UG, QD
     Route: 048
  5. DIOVAN [Suspect]
     Indication: HYPERTENSION
     Dosage: 120 MG, QD
     Route: 048
     Dates: start: 20110920
  6. HYDROCHLOROTHIAZIDE [Interacting]
     Dosage: 18.5 MG, QD
     Route: 048
     Dates: start: 20110921, end: 20111018
  7. HYDROCHLOROTHIAZIDE [Interacting]
     Dosage: 12.5 MG, QD
     Route: 048
     Dates: start: 20111019
  8. CITALOPRAM HYDROBROMIDE [Interacting]
     Dosage: 10 MG, QD
     Route: 048
     Dates: start: 20110922, end: 20110923

REACTIONS (4)
  - HYPONATRAEMIA [None]
  - DIZZINESS [None]
  - DRUG INTERACTION [None]
  - THIRST [None]
